FAERS Safety Report 8810629 (Version 1)
Quarter: 2012Q4

REPORT INFORMATION
  Report Type: Spontaneous
  Country: US (occurrence: None)
  Receive Date: 20120924
  Receipt Date: 20120924
  Transmission Date: 20130627
  Serious: Yes (Other)
  Sender: FDA-Public Use
  Company Number: None

PATIENT
  Age: 213 Month
  Sex: Male
  Weight: 67.3 kg

DRUGS (2)
  1. VENLAFAXINE [Suspect]
     Indication: MAJOR DEPRESSIVE DISORDER NOS
     Route: 048
     Dates: start: 20120912
  2. VENLAFAXINE [Suspect]
     Indication: MAJOR DEPRESSIVE DISORDER NOS
     Dates: start: 20120914

REACTIONS (3)
  - Urticaria [None]
  - Chest pain [None]
  - Hypertension [None]
